FAERS Safety Report 5766122-8 (Version None)
Quarter: 2008Q2

REPORT INFORMATION
  Report Type: 
  Country: None (occurrence: None)
  Receive Date: 20080609
  Receipt Date: 20080502
  Transmission Date: 20081010
  Serious: Yes (Hospitalization)
  Sender: FDA-Public Use
  Company Number: 002#2#2008-00404

PATIENT
  Age: 77 Year
  Sex: Male

DRUGS (3)
  1. NEUPRO [Suspect]
     Indication: DRUG USE FOR UNKNOWN INDICATION
     Dosage: SEE IMAGE
     Route: 062
     Dates: start: 20080201, end: 20080401
  2. NEUPRO [Suspect]
     Indication: DRUG USE FOR UNKNOWN INDICATION
     Dosage: SEE IMAGE
     Route: 062
     Dates: start: 20070101
  3. NEUPRO [Suspect]
     Indication: DRUG USE FOR UNKNOWN INDICATION
     Dosage: SEE IMAGE
     Route: 062
     Dates: start: 20080401

REACTIONS (3)
  - FALL [None]
  - GAIT DISTURBANCE [None]
  - PARKINSON'S DISEASE [None]
